FAERS Safety Report 5373795-0 (Version None)
Quarter: 2007Q2

REPORT INFORMATION
  Report Type: 
  Country: None (occurrence: None)
  Receive Date: 20070628
  Receipt Date: 20070621
  Transmission Date: 20071010
  Serious: Yes (Other)
  Sender: FDA-Public Use
  Company Number: US-GENENTECH-242343

PATIENT
  Sex: Female
  Weight: 76.19 kg

DRUGS (1)
  1. XOLAIR [Suspect]
     Indication: ASTHMA
     Dosage: 375 MG, Q2W
     Route: 058
     Dates: end: 20070531

REACTIONS (2)
  - HYPERSENSITIVITY [None]
  - SWELLING FACE [None]
